FAERS Safety Report 24614579 (Version 2)
Quarter: 2024Q4

REPORT INFORMATION
  Report Type: Spontaneous
  Country: US (occurrence: US)
  Receive Date: 20241113
  Receipt Date: 20241226
  Transmission Date: 20250115
  Serious: Yes (Other)
  Sender: GENMAB
  Company Number: US-GENMAB-2024-03753

PATIENT
  Sex: Male
  Weight: 68.934 kg

DRUGS (7)
  1. EPKINLY [Suspect]
     Active Substance: EPCORITAMAB-BYSP
     Indication: Diffuse large B-cell lymphoma
     Dosage: 0.16 MILLIGRAM
     Route: 058
     Dates: start: 20241016
  2. EPKINLY [Suspect]
     Active Substance: EPCORITAMAB-BYSP
     Dosage: 0.8 MILLIGRAM
     Route: 058
     Dates: start: 20241025
  3. ZARXIO [Concomitant]
     Active Substance: FILGRASTIM-SNDZ
     Indication: Diffuse large B-cell lymphoma
     Dosage: UNK
     Route: 065
  4. DIPHENHYDRAMINE [Concomitant]
     Active Substance: DIPHENHYDRAMINE
     Dosage: UNK
     Route: 065
  5. TYLENOL [Concomitant]
     Active Substance: ACETAMINOPHEN
     Dosage: UNK
     Route: 065
  6. PREDNISONE [Concomitant]
     Active Substance: PREDNISONE
     Dosage: UNK
     Route: 065
  7. SODIUM CHLORIDE [Concomitant]
     Active Substance: SODIUM CHLORIDE
     Dosage: UNK
     Route: 065

REACTIONS (5)
  - Immobile [Not Recovered/Not Resolved]
  - Cytokine release syndrome [Not Recovered/Not Resolved]
  - Fall [Unknown]
  - Peripheral coldness [Unknown]
  - Non-cardiac chest pain [Recovered/Resolved]

NARRATIVE: CASE EVENT DATE: 20241028
